FAERS Safety Report 4333096-6 (Version None)
Quarter: 2004Q2

REPORT INFORMATION
  Report Type: 
  Country: None (occurrence: None)
  Receive Date: 20040402
  Receipt Date: 20040322
  Transmission Date: 20050107
  Serious: Yes (Life-Threatening)
  Sender: FDA-Public Use
  Company Number: A06200400075

PATIENT
  Age: 19 Month
  Sex: Female

DRUGS (1)
  1. FASTURTEC - (RASBURICASE) - SOLUTION - 1.5 MG/ML [Suspect]
     Indication: HYPERURICAEMIA
     Dosage: 0.5 MG  INTRAVENOUS DRIP
     Route: 041
     Dates: start: 20030511, end: 20030511

REACTIONS (3)
  - ANAPHYLACTIC REACTION [None]
  - HYPOTENSION [None]
  - RASH [None]
